FAERS Safety Report 13577817 (Version 21)
Quarter: 2018Q3

REPORT INFORMATION
  Report Type: Report from Study
  Country: CA (occurrence: CA)
  Receive Date: 20170524
  Receipt Date: 20180926
  Transmission Date: 20181010
  Serious: Yes (Disabling, Other)
  Sender: FDA-Public Use
  Company Number: CA-SA-2017SA067125

PATIENT
  Age: 30 Year
  Sex: Female

DRUGS (9)
  1. RANITIDINE. [Concomitant]
     Active Substance: RANITIDINE
     Indication: PREMEDICATION
     Dosage: 150 MG,UNK
     Route: 048
     Dates: start: 20170410, end: 20170412
  2. ALEMTUZUMAB [Suspect]
     Active Substance: ALEMTUZUMAB
     Indication: RELAPSING-REMITTING MULTIPLE SCLEROSIS
     Dosage: 12 MG,QD
     Route: 041
     Dates: start: 20170410, end: 20170412
  3. METHYLPREDNISOLONE. [Concomitant]
     Active Substance: METHYLPREDNISOLONE
     Indication: PREMEDICATION
     Dosage: 1 G,UNK
     Route: 042
     Dates: start: 20170410, end: 20170412
  4. DEPO?PROVERA [Concomitant]
     Active Substance: MEDROXYPROGESTERONE ACETATE
     Indication: CONTRACEPTION
     Dosage: UNK UNK,UNK
     Route: 065
  5. ERGOCALCIFEROL. [Concomitant]
     Active Substance: ERGOCALCIFEROL
     Indication: RELAPSING-REMITTING MULTIPLE SCLEROSIS
     Dosage: 5000 IU,QD
     Route: 048
  6. BENADRYL [Concomitant]
     Active Substance: DIPHENHYDRAMINE HYDROCHLORIDE
     Indication: PREMEDICATION
     Dosage: UNK UNK,PRN
     Dates: start: 20170410
  7. GRAVOL [Concomitant]
     Active Substance: DIMENHYDRINATE
     Indication: PREMEDICATION
     Dosage: 50 MG,UNK
     Route: 048
     Dates: start: 20170410, end: 20170412
  8. PARACETAMOL [Concomitant]
     Active Substance: ACETAMINOPHEN
     Indication: PREMEDICATION
     Dosage: 650 MG,PRN
     Route: 048
     Dates: start: 20170410
  9. ACICLOVIR [Concomitant]
     Active Substance: ACYCLOVIR
     Indication: PREMEDICATION
     Dosage: 200 MG,BID
     Route: 048
     Dates: start: 20170410

REACTIONS (51)
  - Red cell distribution width increased [Recovered/Resolved]
  - Blood thyroid stimulating hormone increased [Not Recovered/Not Resolved]
  - Urticaria [Recovered/Resolved]
  - Urinary tract infection [Not Recovered/Not Resolved]
  - Ear pain [Not Recovered/Not Resolved]
  - Wheelchair user [Recovered/Resolved]
  - Dysuria [Recovering/Resolving]
  - Mean cell volume decreased [Recovered/Resolved]
  - Fatigue [Unknown]
  - Hyperhidrosis [Unknown]
  - Urine abnormality [Not Recovered/Not Resolved]
  - Tri-iodothyronine free [Unknown]
  - Tachycardia [Recovered/Resolved]
  - Balance disorder [Recovered/Resolved]
  - Rash pruritic [Recovered/Resolved]
  - Weight increased [Not Recovered/Not Resolved]
  - Neutropenia [Not Recovered/Not Resolved]
  - Basedow^s disease [Not Recovered/Not Resolved]
  - Crystal urine present [Unknown]
  - Thyroxine free decreased [Recovered/Resolved]
  - Red blood cell count decreased [Unknown]
  - Pollakiuria [Recovered/Resolved]
  - Urinary sediment present [Not Recovered/Not Resolved]
  - Tremor [Recovered/Resolved]
  - Body temperature increased [Recovered/Resolved]
  - Lymphocyte count decreased [Recovered/Resolved]
  - Blood thyroid stimulating hormone decreased [Recovered/Resolved]
  - Temperature intolerance [Unknown]
  - Red blood cells urine positive [Recovered/Resolved]
  - Fatigue [Recovered/Resolved]
  - Rash generalised [Recovered/Resolved]
  - Fatigue [Not Recovered/Not Resolved]
  - Protein urine present [Unknown]
  - Hypoacusis [Not Recovered/Not Resolved]
  - Autoimmune thyroiditis [Unknown]
  - Feeling hot [Recovered/Resolved]
  - Mean cell haemoglobin decreased [Recovered/Resolved]
  - Thyroxine free increased [Recovered/Resolved]
  - Pruritus [Recovered/Resolved]
  - Leukopenia [Recovered/Resolved]
  - Tremor [Unknown]
  - Muscular weakness [Unknown]
  - Urine analysis abnormal [Not Recovered/Not Resolved]
  - Bacterial test positive [Not Recovered/Not Resolved]
  - Urine leukocyte esterase positive [Not Recovered/Not Resolved]
  - White blood cells urine positive [Not Recovered/Not Resolved]
  - Decreased appetite [Not Recovered/Not Resolved]
  - Blood urine present [Recovered/Resolved]
  - Erythema [Recovered/Resolved]
  - Rash erythematous [Recovering/Resolving]
  - Muscular weakness [Not Recovered/Not Resolved]

NARRATIVE: CASE EVENT DATE: 20170410
